FAERS Safety Report 7015641-5 (Version None)
Quarter: 2010Q3

REPORT INFORMATION
  Report Type: 
  Country: None (occurrence: None)
  Receive Date: 20100927
  Receipt Date: 20100920
  Transmission Date: 20110219
  Serious: Yes (Hospitalization)
  Sender: FDA-Public Use
  Company Number: FR-BAYER-201040290GPV

PATIENT
  Age: 40 Year
  Sex: Male

DRUGS (5)
  1. NOCTAMIDE [Suspect]
     Indication: PRODUCT USED FOR UNKNOWN INDICATION
     Route: 048
     Dates: start: 20100519, end: 20100519
  2. ACETAMINOPHEN [Suspect]
     Indication: PRODUCT USED FOR UNKNOWN INDICATION
     Dosage: 1 BOX
     Route: 048
     Dates: start: 20100519, end: 20100519
  3. BI-PROFENID [Suspect]
     Indication: PRODUCT USED FOR UNKNOWN INDICATION
     Route: 048
     Dates: start: 20100519, end: 20100519
  4. ACETAMINOPHEN W/ PROPOXYPHENE HCL [Suspect]
     Indication: PRODUCT USED FOR UNKNOWN INDICATION
     Dosage: 1 BOX
     Route: 048
     Dates: start: 20100519, end: 20100519
  5. ALCOHOL [Suspect]
     Indication: PRODUCT USED FOR UNKNOWN INDICATION
     Dosage: HALF A BOTTLE
     Route: 048

REACTIONS (1)
  - HEPATITIS ACUTE [None]
